FAERS Safety Report 4607840-4 (Version None)
Quarter: 2005Q1

REPORT INFORMATION
  Report Type: 
  Country: None (occurrence: None)
  Receive Date: 20050310
  Receipt Date: 20050303
  Transmission Date: 20050727
  Serious: Yes (Death)
  Sender: FDA-Public Use
  Company Number: 200510533GDS

PATIENT
  Age: 65 Year
  Sex: Female

DRUGS (5)
  1. AVELOX [Suspect]
     Indication: CHRONIC OBSTRUCTIVE AIRWAYS DISEASE EXACERBATED
     Dosage: 400 MG, QD, ORAL
     Route: 048
     Dates: start: 20050214, end: 20050216
  2. FOSAMAX [Concomitant]
  3. NEXIUM [Concomitant]
  4. PREDNISON [Concomitant]
  5. TOLBUTAMIDE [Concomitant]

REACTIONS (5)
  - CARDIAC PERFORATION [None]
  - CARDIAC TAMPONADE [None]
  - EPILEPSY [None]
  - MYOCARDIAL INFARCTION [None]
  - SUDDEN CARDIAC DEATH [None]
